FAERS Safety Report 13438599 (Version 10)
Quarter: 2018Q4

REPORT INFORMATION
  Report Type: Report from Study
  Country: US (occurrence: US)
  Receive Date: 20170412
  Receipt Date: 20181008
  Transmission Date: 20190204
  Serious: Yes (Hospitalization, Other)
  Sender: FDA-Public Use
  Company Number: US-ACTELION-A-NJ2017-148963

PATIENT
  Age: 75 Year
  Sex: Male
  Weight: 81.63 kg

DRUGS (5)
  1. TRACLEER [Suspect]
     Active Substance: BOSENTAN
     Indication: PULMONARY HYPERTENSION
     Dosage: 62.5 MG, BID
     Route: 048
     Dates: start: 20130328
  2. TRACLEER [Suspect]
     Active Substance: BOSENTAN
     Dosage: UNK
     Route: 048
  3. REVATIO [Suspect]
     Active Substance: SILDENAFIL CITRATE
     Indication: PRODUCT USED FOR UNKNOWN INDICATION
     Route: 048
  4. ADCIRCA [Concomitant]
     Active Substance: TADALAFIL
  5. OXYGEN. [Concomitant]
     Active Substance: OXYGEN

REACTIONS (20)
  - Condition aggravated [Unknown]
  - Pulmonary fibrosis [Unknown]
  - Aspartate aminotransferase increased [Unknown]
  - Diarrhoea [Not Recovered/Not Resolved]
  - Dyspnoea [Unknown]
  - Pulmonary function test abnormal [Unknown]
  - Oxygen saturation abnormal [Unknown]
  - Vision blurred [Unknown]
  - Albumin globulin ratio abnormal [Unknown]
  - Eye operation [Unknown]
  - Liver disorder [Unknown]
  - Clostridium difficile infection [Unknown]
  - Change of bowel habit [Unknown]
  - Blood pressure increased [Unknown]
  - Lacrimation increased [Unknown]
  - Nausea [Unknown]
  - Liver function test increased [Unknown]
  - Protein total abnormal [Unknown]
  - Dizziness [Unknown]
  - Alanine aminotransferase increased [Unknown]

NARRATIVE: CASE EVENT DATE: 20180504
